FAERS Safety Report 13285069 (Version 1)
Quarter: 2017Q1

REPORT INFORMATION
  Report Type: Spontaneous
  Country: US (occurrence: US)
  Receive Date: 20170301
  Receipt Date: 20170301
  Transmission Date: 20170428
  Serious: Yes (Other)
  Sender: FDA-Public Use
  Company Number: None

PATIENT
  Age: 60 Year
  Sex: Female
  Weight: 71.55 kg

DRUGS (16)
  1. LIOTHYRONINE [Concomitant]
     Active Substance: LIOTHYRONINE
  2. CLONAZEPAM. [Concomitant]
     Active Substance: CLONAZEPAM
  3. LEVOTHYROXINE. [Concomitant]
     Active Substance: LEVOTHYROXINE
  4. ARIPIPRAZOLE. [Suspect]
     Active Substance: ARIPIPRAZOLE
     Indication: BIPOLAR DISORDER
     Dosage: ?          QUANTITY:30 TABLET(S);?
     Route: 048
  5. LAMOTRIGINE. [Concomitant]
     Active Substance: LAMOTRIGINE
  6. AZITHROMYCIN ANHYDROUS. [Concomitant]
     Active Substance: AZITHROMYCIN ANHYDROUS
  7. ZOLPIDEM [Concomitant]
     Active Substance: ZOLPIDEM\ZOLPIDEM TARTRATE
  8. GABAPENTIN. [Concomitant]
     Active Substance: GABAPENTIN
  9. FLUOXETINE [Concomitant]
     Active Substance: FLUOXETINE HYDROCHLORIDE
  10. EXEMESTANE. [Concomitant]
     Active Substance: EXEMESTANE
  11. PROPRANOLOL [Concomitant]
     Active Substance: PROPRANOLOL HYDROCHLORIDE
  12. AMPHETAMINE [Concomitant]
     Active Substance: AMPHETAMINE
  13. PRAZOSIN [Concomitant]
     Active Substance: PRAZOSIN
  14. VITAMIN B [Concomitant]
     Active Substance: VITAMIN B
  15. B6 [Concomitant]
     Active Substance: PYRIDOXINE HYDROCHLORIDE
  16. NIACIN. [Concomitant]
     Active Substance: NIACIN

REACTIONS (1)
  - Tardive dyskinesia [None]

NARRATIVE: CASE EVENT DATE: 20160610
